FAERS Safety Report 6689286-0 (Version None)
Quarter: 2010Q2

REPORT INFORMATION
  Report Type: 
  Country: None (occurrence: None)
  Receive Date: 20100416
  Receipt Date: 20100407
  Transmission Date: 20101027
  Serious: Yes (Other)
  Sender: FDA-Public Use
  Company Number: DSA_42741_2010

PATIENT
  Sex: Female

DRUGS (3)
  1. XENAZINE [Suspect]
     Indication: DRUG USE FOR UNKNOWN INDICATION
     Dosage: 25 MG QD ORAL, 12.5 MG 1/2 TABLET BID ORAL
     Route: 048
     Dates: end: 20100127
  2. XENAZINE [Suspect]
     Indication: DRUG USE FOR UNKNOWN INDICATION
     Dosage: 25 MG QD ORAL, 12.5 MG 1/2 TABLET BID ORAL
     Route: 048
     Dates: start: 20100128
  3. PROZAC [Concomitant]

REACTIONS (3)
  - ANXIETY [None]
  - RESTLESSNESS [None]
  - SUICIDAL IDEATION [None]
